FAERS Safety Report 23252708 (Version 2)
Quarter: 2023Q4

REPORT INFORMATION
  Report Type: Spontaneous
  Country: US (occurrence: US)
  Receive Date: 20231201
  Receipt Date: 20231229
  Transmission Date: 20240109
  Serious: No
  Sender: FDA-Public Use
  Company Number: US-BRISTOL-MYERS SQUIBB COMPANY-2023-174391

PATIENT
  Age: 87 Year
  Sex: Female
  Weight: 62.8 kg

DRUGS (1)
  1. LENALIDOMIDE [Suspect]
     Active Substance: LENALIDOMIDE
     Indication: B-cell small lymphocytic lymphoma
     Route: 048
     Dates: start: 20230911

REACTIONS (4)
  - Blood test abnormal [Unknown]
  - Haemoglobin abnormal [Unknown]
  - Off label use [Unknown]
  - Full blood count decreased [Not Recovered/Not Resolved]
